FAERS Safety Report 17078678 (Version 10)
Quarter: 2020Q4

REPORT INFORMATION
  Report Type: Report from Study
  Country: CO (occurrence: CO)
  Receive Date: 20191127
  Receipt Date: 20201118
  Transmission Date: 20210113
  Serious: Yes (Other)
  Sender: FDA-Public Use
  Company Number: CO-AUROBINDO-AUR-APL-2019-075701

PATIENT
  Age: 75 Year
  Sex: Male

DRUGS (9)
  1. FOLOTYN [Suspect]
     Active Substance: PRALATREXATE
     Dosage: 50 MILLIGRAM, DAILY
     Route: 042
     Dates: start: 20200303, end: 20200311
  2. FOLOTYN [Suspect]
     Active Substance: PRALATREXATE
     Dosage: 40 MILLIGRAM
     Route: 065
     Dates: start: 20201014
  3. FOLOTYN [Suspect]
     Active Substance: PRALATREXATE
     Dosage: 40 MILLIGRAM
     Route: 065
     Dates: start: 20201028
  4. FOLOTYN [Suspect]
     Active Substance: PRALATREXATE
     Dosage: UNK
     Route: 065
     Dates: start: 20200923
  5. FOLOTYN [Suspect]
     Active Substance: PRALATREXATE
     Indication: PERIPHERAL T-CELL LYMPHOMA UNSPECIFIED
     Dosage: 60 MILLIGRAM, DAILY (CYCLE 1 WEEK 6)
     Route: 042
     Dates: start: 20181103, end: 20181210
  6. VITAMIN B12 [Concomitant]
     Active Substance: CYANOCOBALAMIN
     Indication: PRODUCT USED FOR UNKNOWN INDICATION
     Dosage: UNK
     Route: 065
  7. FOLOTYN [Suspect]
     Active Substance: PRALATREXATE
     Dosage: 40 MILLIGRAM
     Route: 065
     Dates: start: 20200930
  8. FOLOTYN [Suspect]
     Active Substance: PRALATREXATE
     Dosage: 40 MILLIGRAM
     Route: 065
     Dates: start: 20200923
  9. FOLIC ACID. [Concomitant]
     Active Substance: FOLIC ACID
     Indication: PRODUCT USED FOR UNKNOWN INDICATION
     Dosage: UNK
     Route: 065

REACTIONS (8)
  - Alopecia [Recovering/Resolving]
  - Disease progression [Not Recovered/Not Resolved]
  - Nasal mucosal blistering [Unknown]
  - Pruritus [Unknown]
  - Mucosal inflammation [Recovering/Resolving]
  - Epistaxis [Recovering/Resolving]
  - Rhinitis [Unknown]
  - Folliculitis [Unknown]

NARRATIVE: CASE EVENT DATE: 20191113
